FAERS Safety Report 13253213 (Version 1)
Quarter: 2017Q1

REPORT INFORMATION
  Report Type: Spontaneous
  Country: DE (occurrence: DE)
  Receive Date: 20170220
  Receipt Date: 20170220
  Transmission Date: 20170428
  Serious: Yes (Hospitalization, Other)
  Sender: FDA-Public Use
  Company Number: DE-BRISTOL-MYERS SQUIBB COMPANY-BMS-2017-012946

PATIENT
  Age: 58 Year
  Sex: Male

DRUGS (2)
  1. OPDIVO [Suspect]
     Active Substance: NIVOLUMAB
     Indication: MALIGNANT MELANOMA
     Dosage: 1 MG/KG, UNK
     Route: 065
     Dates: start: 201608
  2. YERVOY [Suspect]
     Active Substance: IPILIMUMAB
     Indication: MALIGNANT MELANOMA
     Dosage: 3 MG/KG, UNK
     Route: 065
     Dates: start: 201608

REACTIONS (20)
  - Lymphoedema [Unknown]
  - Fall [Unknown]
  - Multiple fractures [Unknown]
  - Hot flush [Unknown]
  - Night sweats [Unknown]
  - Dizziness [Unknown]
  - Pain [Unknown]
  - Ear pain [Unknown]
  - Papule [Unknown]
  - Rash [Unknown]
  - Body temperature increased [Unknown]
  - Hypotension [Unknown]
  - Pruritus [Unknown]
  - Neutropenia [Unknown]
  - Agranulocytosis [Unknown]
  - Mood altered [Unknown]
  - General physical health deterioration [Unknown]
  - Diarrhoea [Unknown]
  - Oral disorder [Unknown]
  - Therapeutic procedure [Unknown]
